FAERS Safety Report 22871093 (Version 2)
Quarter: 2023Q4

REPORT INFORMATION
  Report Type: Spontaneous
  Country: TR (occurrence: TR)
  Receive Date: 20230828
  Receipt Date: 20231103
  Transmission Date: 20240110
  Serious: Yes (Other)
  Sender: FDA-Public Use
  Company Number: TR-002147023-NVSC2023TR185555

PATIENT
  Age: 44 Year
  Sex: Male

DRUGS (1)
  1. SECUKINUMAB [Suspect]
     Active Substance: SECUKINUMAB
     Indication: Ankylosing spondylitis
     Dosage: UNK, QMO (SERIAL NUMBER: 2114000070684201) (FOR 3 MONTH)
     Route: 058

REACTIONS (2)
  - Ejaculation disorder [Unknown]
  - Ejaculation failure [Unknown]
